FAERS Safety Report 5036702-6 (Version None)
Quarter: 2006Q2

REPORT INFORMATION
  Report Type: 
  Country: None (occurrence: None)
  Receive Date: 20060628
  Receipt Date: 20060518
  Transmission Date: 20061013
  Serious: Yes (Hospitalization)
  Sender: FDA-Public Use
  Company Number: US-AMGEN-STX180044

PATIENT
  Sex: Male
  Weight: 75.4 kg

DRUGS (9)
  1. ENBREL [Suspect]
     Indication: RHEUMATOID ARTHRITIS
     Route: 058
     Dates: start: 20030101
  2. AZULFIDINE [Concomitant]
  3. MEDROL [Concomitant]
  4. DARVOCET [Concomitant]
  5. TYLENOL (CAPLET) [Concomitant]
  6. MULTIVIT [Concomitant]
  7. TOPROL-XL [Concomitant]
  8. LIPITOR [Concomitant]
  9. PREVACID [Concomitant]
     Route: 048

REACTIONS (6)
  - CONTUSION [None]
  - FALL [None]
  - HAEMATOMA [None]
  - HIP FRACTURE [None]
  - JOINT SWELLING [None]
  - PAIN [None]
